FAERS Safety Report 5609167-0 (Version None)
Quarter: 2008Q1

REPORT INFORMATION
  Report Type: 
  Country: None (occurrence: None)
  Receive Date: 20080131
  Receipt Date: 20080124
  Transmission Date: 20080703
  Serious: Yes (Life-Threatening, Hospitalization)
  Sender: FDA-Public Use
  Company Number: IL-ABBOTT-08P-082-0434969-00

PATIENT
  Age: 51 Year
  Sex: Female

DRUGS (1)
  1. ZEMPLAR SOLUTION [Suspect]
     Indication: HYPERPARATHYROIDISM SECONDARY
     Route: 042
     Dates: start: 20071101, end: 20080120

REACTIONS (1)
  - CEREBRAL HAEMORRHAGE [None]
